FAERS Safety Report 5357045-7 (Version None)
Quarter: 2007Q2

REPORT INFORMATION
  Report Type: 
  Country: None (occurrence: None)
  Receive Date: 20070614
  Receipt Date: 20070605
  Transmission Date: 20071010
  Serious: Yes (Death)
  Sender: FDA-Public Use
  Company Number: US-BAXTER-2007BH005118

PATIENT
  Age: 50 Year
  Sex: Male

DRUGS (1)
  1. KETOROLAC TROMETHAMINE [Suspect]
     Indication: HEADACHE
     Dosage: DOSE UNIT:UNKNOWN
     Route: 030
     Dates: start: 20030101

REACTIONS (2)
  - CELLULITIS [None]
  - NECROTISING FASCIITIS [None]
